FAERS Safety Report 4492285-0 (Version None)
Quarter: 2004Q4

REPORT INFORMATION
  Report Type: 
  Country: None (occurrence: None)
  Receive Date: 20041029
  Receipt Date: 20041027
  Transmission Date: 20050328
  Serious: Yes (Hospitalization, Other)
  Sender: FDA-Public Use
  Company Number: USA-2004-0012715

PATIENT
  Age: 38 Year
  Sex: Female

DRUGS (9)
  1. OXYCONTIN [Suspect]
     Indication: CANCER PAIN
     Dates: start: 20031208
  2. ROXANOL (MORPHINE SULFATE) [Suspect]
     Indication: CANCER PAIN
     Dosage: 20 MG
     Dates: start: 20031208
  3. METOCLOPRAMIDE [Suspect]
  4. IRINOTECAN (IRINOTECAN) [Suspect]
  5. CITALOPRAM [Suspect]
  6. GEMCITABINE (GEMCITABINE) [Concomitant]
  7. MEGACE [Concomitant]
  8. DOLASETRON (DOLASETRON) [Concomitant]
  9. LEVOFLOXACIN [Concomitant]

REACTIONS (10)
  - ABDOMINAL DISTENSION [None]
  - ABDOMINAL PAIN [None]
  - ASCITES [None]
  - CARCINOMA [None]
  - CONSTIPATION [None]
  - DISEASE PROGRESSION [None]
  - FLATULENCE [None]
  - MALIGNANT NEOPLASM PROGRESSION [None]
  - PLEURAL EFFUSION [None]
  - ULTRASOUND ABDOMEN ABNORMAL [None]
